FAERS Safety Report 4718538-6 (Version None)
Quarter: 2005Q3

REPORT INFORMATION
  Report Type: 
  Country: None (occurrence: None)
  Receive Date: 20050719
  Receipt Date: 20050314
  Transmission Date: 20060218
  Serious: Yes (Other)
  Sender: FDA-Public Use
  Company Number: 2005044280

PATIENT
  Sex: Female

DRUGS (11)
  1. CELEBREX [Suspect]
     Indication: ILL-DEFINED DISORDER
  2. METFORMIN HCL [Concomitant]
  3. INSULIN HUMAN (INSULIN HUMAN) [Concomitant]
  4. INSULIN HUMAN INJECTION, ISOPHANE (INSULIN HUMAN INJECTION, ISOPHANE) [Concomitant]
  5. NAPROXEN SODIUM [Concomitant]
  6. IBUPROFEN [Concomitant]
  7. PROPACET 100 [Concomitant]
  8. CODEINE PHOSPHATE AND ACETAMINOPHEN [Concomitant]
  9. ATORVASTATIN CALCIUM [Concomitant]
  10. ASPIRIN [Concomitant]
  11. VENLAFAXINE HCL [Concomitant]

REACTIONS (1)
  - CEREBROVASCULAR ACCIDENT [None]
